FAERS Safety Report 6211740-6 (Version None)
Quarter: 2009Q2

REPORT INFORMATION
  Report Type: 
  Country: None (occurrence: None)
  Receive Date: 20090528
  Receipt Date: 20090520
  Transmission Date: 20091009
  Serious: Yes (Other)
  Sender: FDA-Public Use
  Company Number: 2009JP002348

PATIENT
  Age: 87 Year
  Sex: Female
  Weight: 42 kg

DRUGS (7)
  1. VESICARE [Suspect]
     Indication: HYPERTONIC BLADDER
     Dosage: 5 MG, UID/QD, ORAL
     Route: 048
     Dates: start: 20090306, end: 20090417
  2. NORVASC [Concomitant]
  3. BUFFERIN TABLET [Concomitant]
  4. AMPLIT (LOFEPRAMINE HYDROCHLORIDE) TABLET [Concomitant]
  5. DOGMATYL (SULPIRIDE) TABLET [Concomitant]
  6. RIZE (CLOTIAZEPAM) TABLET [Concomitant]
  7. POLARAMINE [Concomitant]

REACTIONS (1)
  - DEMENTIA [None]
